FAERS Safety Report 19797146 (Version 1)
Quarter: 2021Q3

REPORT INFORMATION
  Report Type: Spontaneous
  Country: IL (occurrence: IL)
  Receive Date: 20210907
  Receipt Date: 20210907
  Transmission Date: 20211014
  Serious: Yes (Hospitalization)
  Sender: FDA-Public Use
  Company Number: IL-ABBVIE-21P-082-4069526-00

PATIENT
  Age: 22 Year
  Sex: Female

DRUGS (8)
  1. CLARITHROMYCIN. [Suspect]
     Active Substance: CLARITHROMYCIN
     Indication: HELICOBACTER INFECTION
     Route: 065
  2. NEXIUM [Suspect]
     Active Substance: ESOMEPRAZOLE MAGNESIUM
     Indication: HELICOBACTER INFECTION
     Route: 065
  3. TOZINAMERAN. [Suspect]
     Active Substance: TOZINAMERAN
     Indication: COVID-19 IMMUNISATION
     Dosage: FIRST SINGLE DOSE
     Route: 065
     Dates: start: 20210321, end: 2021
  4. TINIDAZOLE. [Suspect]
     Active Substance: TINIDAZOLE
     Indication: HELICOBACTER INFECTION
     Route: 065
  5. ARCOXIA [Suspect]
     Active Substance: ETORICOXIB
     Indication: ARTHRALGIA
     Route: 065
  6. TOZINAMERAN. [Suspect]
     Active Substance: TOZINAMERAN
     Dosage: SINGLE DOSE
     Route: 065
     Dates: start: 20210411, end: 20210411
  7. YASMIN [Concomitant]
     Active Substance: DROSPIRENONE\ETHINYL ESTRADIOL
     Indication: CONTRACEPTION
     Route: 065
  8. MOXYPEN [Suspect]
     Active Substance: AMOXICILLIN
     Indication: HELICOBACTER INFECTION
     Route: 065

REACTIONS (9)
  - Petechiae [Unknown]
  - Lymphadenopathy [Unknown]
  - Vasculitis [Unknown]
  - Arthralgia [Unknown]
  - Synovitis [Unknown]
  - Rash [Unknown]
  - Hospitalisation [Unknown]
  - Abdominal tenderness [Unknown]
  - Urinary tract infection [Unknown]

NARRATIVE: CASE EVENT DATE: 2021
